FAERS Safety Report 9302890 (Version 3)
Quarter: 2015Q2

REPORT INFORMATION
  Report Type: Report from Study
  Country: BR (occurrence: BR)
  Receive Date: 20130522
  Receipt Date: 20150619
  Transmission Date: 20150821
  Serious: Yes (Death, Hospitalization, Other)
  Sender: FDA-Public Use
  Company Number: BR-BAYER-2013-060210

PATIENT
  Age: 78 Year
  Sex: Male
  Weight: 52.15 kg

DRUGS (5)
  1. NEXAVAR [Suspect]
     Active Substance: SORAFENIB
     Indication: HEPATIC CANCER
     Dosage: 2 TABLETS, EVERY 12 HOURS
     Route: 048
     Dates: start: 201304, end: 20130512
  2. NEXAVAR [Suspect]
     Active Substance: SORAFENIB
     Indication: HEPATIC CANCER
     Dosage: DAILY DOSE 800 MG
     Route: 048
     Dates: start: 201307
  3. NEXAVAR [Suspect]
     Active Substance: SORAFENIB
     Indication: HEPATIC CANCER
     Dosage: 200 MG, BID
     Route: 048
  4. GLIFAGE [Concomitant]
     Active Substance: METFORMIN HYDROCHLORIDE
     Indication: DIABETES MELLITUS
     Dosage: 1 DF, QD
     Route: 048
  5. NEXAVAR [Suspect]
     Active Substance: SORAFENIB
     Indication: HEPATIC CANCER
     Dosage: 200 MG, QD
     Route: 048
     Dates: end: 201404

REACTIONS (15)
  - Hepatic cancer [Fatal]
  - Malaise [Recovering/Resolving]
  - Blister [Not Recovered/Not Resolved]
  - Headache [Recovering/Resolving]
  - Decreased appetite [Not Recovered/Not Resolved]
  - Erythema [Recovering/Resolving]
  - Vomiting [Not Recovered/Not Resolved]
  - Pruritus [Recovering/Resolving]
  - Asthenia [Recovering/Resolving]
  - Blister [Recovered/Resolved]
  - Nausea [Not Recovered/Not Resolved]
  - Blister [Not Recovered/Not Resolved]
  - Hypersensitivity [Recovering/Resolving]
  - Diabetes mellitus inadequate control [Recovered/Resolved]
  - Malaise [Not Recovered/Not Resolved]

NARRATIVE: CASE EVENT DATE: 201304
